FAERS Safety Report 19993436 (Version 1)
Quarter: 2021Q4

REPORT INFORMATION
  Report Type: Spontaneous
  Country: GB (occurrence: GB)
  Receive Date: 20211026
  Receipt Date: 20211026
  Transmission Date: 20220303
  Serious: Yes (Other)
  Sender: FDA-Public Use
  Company Number: GB-BIO PRODUCTS LABORATORY LTD-2120983

PATIENT
  Age: 52 Year
  Sex: Male

DRUGS (6)
  1. HUMAN IMMUNOGLOBULIN G [Suspect]
     Active Substance: HUMAN IMMUNOGLOBULIN G
     Indication: Encephalomyelitis
     Route: 042
  2. DIAZEPAM [Concomitant]
     Active Substance: DIAZEPAM
  3. BACLOFEN [Concomitant]
     Active Substance: BACLOFEN
  4. TIZANIDINE [Concomitant]
     Active Substance: TIZANIDINE
  5. DANTROLENE. [Concomitant]
     Active Substance: DANTROLENE SODIUM
  6. MYCOPHENOLATE MOFETIL [Concomitant]
     Active Substance: MYCOPHENOLATE MOFETIL

REACTIONS (4)
  - Deep vein thrombosis [Unknown]
  - Pulmonary embolism [Unknown]
  - Therapy partial responder [Unknown]
  - Off label use [Unknown]
